FAERS Safety Report 7683509-7 (Version None)
Quarter: 2011Q3

REPORT INFORMATION
  Report Type: 
  Country: None (occurrence: None)
  Receive Date: 20110815
  Receipt Date: 20110804
  Transmission Date: 20111222
  Serious: Yes (Other)
  Sender: FDA-Public Use
  Company Number: US-ASTRAZENECA-2011SE46993

PATIENT
  Age: 65 Year
  Sex: Female

DRUGS (4)
  1. SYMBICORT [Suspect]
     Route: 055
  2. ALBUTEROL SULFATE AUTOHALER [Concomitant]
  3. DUONEB [Concomitant]
  4. NEXIUM [Suspect]
     Route: 048

REACTIONS (3)
  - PNEUMONIA [None]
  - VOMITING [None]
  - ASPIRATION [None]
